FAERS Safety Report 10546619 (Version 1)
Quarter: 2014Q4

REPORT INFORMATION
  Report Type: Spontaneous
  Country: US (occurrence: US)
  Receive Date: 20141027
  Receipt Date: 20141027
  Transmission Date: 20150529
  Serious: No
  Sender: FDA-Public Use
  Company Number: US-ABBVIE-13P-163-1176864-00

PATIENT
  Sex: Female

DRUGS (2)
  1. LUPRON [Suspect]
     Active Substance: LEUPROLIDE ACETATE
     Indication: LAPAROSCOPY
  2. LUPRON [Suspect]
     Active Substance: LEUPROLIDE ACETATE
     Indication: HYSTEROSCOPY

REACTIONS (2)
  - Muscle spasms [Unknown]
  - Haemorrhage [Unknown]
